FAERS Safety Report 7883910-2 (Version None)
Quarter: 2011Q4

REPORT INFORMATION
  Report Type: 
  Country: None (occurrence: None)
  Receive Date: 20111102
  Receipt Date: 20111025
  Transmission Date: 20120403
  Serious: Yes (Disabling, Other)
  Sender: FDA-Public Use
  Company Number: JP-JNJFOC-20111007222

PATIENT
  Age: 88 Year
  Sex: Female

DRUGS (8)
  1. MOTILIUM [Suspect]
     Indication: PRODUCT USED FOR UNKNOWN INDICATION
     Dosage: 1 PER 1 DAY
     Route: 048
     Dates: start: 20110915, end: 20111003
  2. TRAMADOL HYDROCHLORIDE/ACETAMINOPHEN [Suspect]
     Indication: PAIN
     Dosage: 1PER DAY
     Route: 048
     Dates: start: 20110915, end: 20111003
  3. ALENDRONATE SODIUM [Concomitant]
     Route: 048
  4. ONEALFA [Concomitant]
     Route: 048
  5. PRORENAL [Concomitant]
     Route: 048
  6. CLONAZEPAM [Concomitant]
     Route: 048
  7. REBAMIPIDE [Concomitant]
     Route: 048
  8. SELTOUCH [Concomitant]
     Dosage: FOR EXTERNAL USE
     Route: 065

REACTIONS (4)
  - CONTUSION [None]
  - DIZZINESS [None]
  - FALL [None]
  - SOMNOLENCE [None]
